FAERS Safety Report 5963427-2 (Version None)
Quarter: 2008Q4

REPORT INFORMATION
  Report Type: 
  Country: None (occurrence: None)
  Receive Date: 20081121
  Receipt Date: 20081121
  Transmission Date: 20090506
  Serious: Yes (Life-Threatening)
  Sender: FDA-Public Use
  Company Number: None

PATIENT
  Age: 77 Year
  Sex: Male
  Weight: 67 kg

DRUGS (11)
  1. WARFARIN SODIUM [Suspect]
     Indication: DEEP VEIN THROMBOSIS
     Dosage: 2.5MG PO QD
     Route: 048
     Dates: start: 20080728, end: 20080729
  2. WARFARIN SODIUM [Suspect]
     Indication: PROPHYLAXIS
     Dosage: 2.5MG PO QD
     Route: 048
     Dates: start: 20080728, end: 20080729
  3. AMIODARONE HCL [Concomitant]
  4. METRONIDAZOLE [Concomitant]
  5. VANCOMYCIN [Concomitant]
  6. ATORVASTATIN [Concomitant]
  7. LEVOTHYROXINE SODIUM [Concomitant]
  8. LANSOPRAZOLE [Concomitant]
  9. OXYCODONE HCL [Concomitant]
  10. MIRTAZAPINE [Concomitant]
  11. LACTOBACILLUS [Concomitant]

REACTIONS (6)
  - CARDIO-RESPIRATORY ARREST [None]
  - CATHETER SITE HAEMORRHAGE [None]
  - HAEMOGLOBIN DECREASED [None]
  - HAEMORRHAGE [None]
  - INTERNATIONAL NORMALISED RATIO INCREASED [None]
  - PULSE ABSENT [None]
